FAERS Safety Report 24428306 (Version 5)
Quarter: 2025Q1

REPORT INFORMATION
  Report Type: Spontaneous
  Country: GR (occurrence: GR)
  Receive Date: 20241011
  Receipt Date: 20250318
  Transmission Date: 20250408
  Serious: Yes (Other)
  Sender: PFIZER
  Company Number: GR-PFIZER INC-PV202400130382

PATIENT
  Sex: Female

DRUGS (1)
  1. GENOTROPIN [Suspect]
     Active Substance: SOMATROPIN
     Dosage: 6MG/WEEK WITH ONE DAY OFF
     Dates: start: 202106

REACTIONS (3)
  - Device use error [Unknown]
  - Device material issue [Unknown]
  - Injury associated with device [Recovered/Resolved]
